FAERS Safety Report 7904921-4 (Version None)
Quarter: 2011Q4

REPORT INFORMATION
  Report Type: 
  Country: None (occurrence: None)
  Receive Date: 20111109
  Receipt Date: 20111101
  Transmission Date: 20120403
  Serious: Yes (Hospitalization)
  Sender: FDA-Public Use
  Company Number: PHHY2011VE097631

PATIENT
  Sex: Female

DRUGS (5)
  1. ZOLEDRONOC ACID [Suspect]
     Indication: OSTEOPOROSIS
     Dosage: 5 MG,ONCE A YEAR
     Route: 042
     Dates: start: 20090701
  2. ZOLEDRONOC ACID [Suspect]
     Dosage: 5 MG,ONCE A YEAR
     Route: 042
     Dates: start: 20100701
  3. WARFARIN SODIUM [Concomitant]
     Indication: ANTICOAGULANT THERAPY
     Dosage: 2 MG, DAILY
  4. CONCOR [Concomitant]
     Indication: BLOOD PRESSURE
     Dosage: 1.25 MG, UNK
  5. DILANTIN [Concomitant]
     Indication: CONVULSION
     Dosage: 300 MG, UNK

REACTIONS (5)
  - RENAL DISORDER [None]
  - CEREBROVASCULAR ACCIDENT [None]
  - THROMBOSIS [None]
  - URINARY TRACT INFECTION [None]
  - BLOOD UREA INCREASED [None]
